FAERS Safety Report 9916059 (Version 1)
Quarter: 2014Q1

REPORT INFORMATION
  Report Type: Spontaneous
  Country: US (occurrence: None)
  Receive Date: 20140220
  Receipt Date: 20140220
  Transmission Date: 20141002
  Serious: Yes (Hospitalization)
  Sender: FDA-Public Use
  Company Number: None

PATIENT
  Age: 74 Year
  Sex: Female

DRUGS (2)
  1. MIDNITE PM [Suspect]
  2. AMLODIPINE [Suspect]
     Dates: start: 20140201, end: 20140218

REACTIONS (2)
  - Blood pressure increased [None]
  - Drug interaction [None]
